FAERS Safety Report 5290484-1 (Version None)
Quarter: 2007Q2

REPORT INFORMATION
  Report Type: 
  Country: None (occurrence: None)
  Receive Date: 20070405
  Receipt Date: 20070405
  Transmission Date: 20071010
  Serious: Yes (Hospitalization)
  Sender: FDA-Public Use
  Company Number: None

PATIENT
  Age: 71 Year
  Sex: Male
  Weight: 82.1011 kg

DRUGS (17)
  1. BEVACIZUMAB 25MG/ML [Suspect]
     Indication: NON-SMALL CELL LUNG CANCER
     Dosage: 10 MG/KG DAYS 1+15 IV
     Route: 042
     Dates: start: 20070109
  2. PEMETREXED 25 MG/M2 [Suspect]
     Indication: NON-SMALL CELL LUNG CANCER
     Dosage: 500 MG/M2 DAYS 1+15 IV
     Route: 042
     Dates: start: 20070109
  3. ERLOTINIB 100MG [Suspect]
     Indication: NON-SMALL CELL LUNG CANCER
     Dosage: 100 MG PO ON DAYS 2-6 AND 16-22 EACH CYCLE OF TREATMENT
     Route: 048
     Dates: start: 20070110
  4. LIPITOR [Concomitant]
  5. FLOMAX [Concomitant]
  6. VASOTEC [Concomitant]
  7. ACTOS [Concomitant]
  8. CLARITIN [Concomitant]
  9. CHLORTHALID (ATENOLOL) [Concomitant]
  10. WELLBUTRIN [Concomitant]
  11. TYLENOL (CAPLET) [Concomitant]
  12. DEXAMETHASONE [Concomitant]
  13. FOLIC ACID [Concomitant]
  14. VITAMIN B12 [Concomitant]
  15. COMPAZINE [Concomitant]
  16. CLEOCIN LOTION (CLINDAMYCIN) [Concomitant]
  17. ARANESP [Concomitant]

REACTIONS (4)
  - BLADDER CANCER [None]
  - HAEMATOCRIT DECREASED [None]
  - HAEMORRHAGE [None]
  - PENILE PAIN [None]
